FAERS Safety Report 11946414 (Version 1)
Quarter: 2016Q1

REPORT INFORMATION
  Report Type: Spontaneous
  Country: US (occurrence: US)
  Receive Date: 20160125
  Receipt Date: 20160125
  Transmission Date: 20160526
  Serious: No
  Sender: FDA-Public Use
  Company Number: US-JNJFOC-20151222755

PATIENT
  Sex: Female

DRUGS (4)
  1. MENS ROGAINE EXTRA STRENGTH [Suspect]
     Active Substance: MINOXIDIL
     Route: 061
  2. MENS ROGAINE EXTRA STRENGTH [Suspect]
     Active Substance: MINOXIDIL
     Indication: ALOPECIA
     Dosage: USED FOR 231 DAYS, HALF CAP
     Route: 061
  3. IRON [Concomitant]
     Active Substance: IRON
     Indication: PRODUCT USED FOR UNKNOWN INDICATION
     Dosage: 2-3X DAILY
     Route: 065
  4. ZINC [Concomitant]
     Active Substance: ZINC\ZINC CHLORIDE
     Indication: PRODUCT USED FOR UNKNOWN INDICATION
     Dosage: 2-3X DAILY
     Route: 065

REACTIONS (3)
  - Off label use [Unknown]
  - Drug ineffective [Unknown]
  - Wrong patient received medication [Unknown]
